FAERS Safety Report 22170219 (Version 3)
Quarter: 2023Q2

REPORT INFORMATION
  Report Type: Report from Study
  Country: CA (occurrence: CA)
  Receive Date: 20230404
  Receipt Date: 20230614
  Transmission Date: 20230721
  Serious: Yes (Hospitalization, Other)
  Sender: FDA-Public Use
  Company Number: CA-JNJFOC-20230137314

PATIENT
  Age: 67 Year
  Sex: Female

DRUGS (2)
  1. STELARA [Suspect]
     Active Substance: USTEKINUMAB
     Indication: Crohn^s disease
     Dosage: ON 01-FEB-2023, THE PATIENT RECEIVED HER 3 RD INJECTION WITH 90 MG DOSE OF USTEKINUMAB AND PARTIAL H
     Route: 058
     Dates: start: 20221014
  2. STELARA [Suspect]
     Active Substance: USTEKINUMAB

REACTIONS (5)
  - Colon cancer [Unknown]
  - Intestinal stenosis [Recovering/Resolving]
  - Intestinal obstruction [Not Recovered/Not Resolved]
  - Arterial thrombosis [Unknown]
  - Diarrhoea [Recovering/Resolving]

NARRATIVE: CASE EVENT DATE: 20230113
